FAERS Safety Report 7744366-3 (Version None)
Quarter: 2011Q3

REPORT INFORMATION
  Report Type: 
  Country: None (occurrence: None)
  Receive Date: 20110912
  Receipt Date: 20110901
  Transmission Date: 20111222
  Serious: Yes (Hospitalization)
  Sender: FDA-Public Use
  Company Number: BR-ASTRAZENECA-2011SE53147

PATIENT
  Age: 38 Year
  Sex: Female
  Weight: 108 kg

DRUGS (3)
  1. ATACAND [Suspect]
     Indication: HYPERTENSION
     Route: 048
     Dates: start: 20110821
  2. ATACAND HCT [Suspect]
     Indication: HYPERTENSION
     Dosage: 16 MG / 5 MG DAILY
     Route: 048
     Dates: start: 20110401, end: 20110820
  3. PROPAFENONE HCL [Concomitant]
     Dates: start: 20110101

REACTIONS (3)
  - SYNCOPE [None]
  - INAPPROPRIATE SCHEDULE OF DRUG ADMINISTRATION [None]
  - DYSPNOEA [None]
